FAERS Safety Report 7554969-7 (Version None)
Quarter: 2011Q2

REPORT INFORMATION
  Report Type: 
  Country: None (occurrence: None)
  Receive Date: 20110617
  Receipt Date: 20110613
  Transmission Date: 20111010
  Serious: Yes (Hospitalization)
  Sender: FDA-Public Use
  Company Number: US-ROXANE LABORATORIES, INC.-2011-RO-00813RO

PATIENT
  Sex: Male

DRUGS (6)
  1. APIXABAN [Suspect]
     Indication: THROMBOSIS PROPHYLAXIS
     Dosage: 10 MG
     Route: 048
     Dates: start: 20100720, end: 20110510
  2. DIGOXIN [Concomitant]
  3. METOPROLOL TARTRATE [Concomitant]
  4. BENZODIAZEPINE [Suspect]
  5. METHADONE HCL [Suspect]
  6. LISINOPRIL [Concomitant]

REACTIONS (4)
  - HYPOXIA [None]
  - GRAND MAL CONVULSION [None]
  - OVERDOSE [None]
  - RHABDOMYOLYSIS [None]
